FAERS Safety Report 10252651 (Version 1)
Quarter: 2014Q2

REPORT INFORMATION
  Report Type: Spontaneous
  Country: US (occurrence: None)
  Receive Date: 20140619
  Receipt Date: 20140619
  Transmission Date: 20141212
  Serious: Yes (Other)
  Sender: FDA-Public Use
  Company Number: AUR-APL-2014-06439

PATIENT
  Age: 72 Year
  Sex: Male

DRUGS (6)
  1. PAROXETINE [Suspect]
     Indication: DEPRESSION
     Route: 048
  2. AMLODIPINE ( AMLODIPINE) [Concomitant]
  3. VITAMIN C ( ASCORBIC ACID) [Concomitant]
  4. ASPIRIN ( ACETYLSALICYLIC ACID) [Concomitant]
  5. LISINOPRIL ( LISINOPRIL) [Concomitant]
  6. METOPROLOL ( METOPROLOL) [Concomitant]

REACTIONS (2)
  - Hiccups [None]
  - Delirium [None]
